APPROVED DRUG PRODUCT: PRECOSE
Active Ingredient: ACARBOSE
Strength: 50MG **Federal Register determination that product was not discontinued or withdrawn for safety or effectiveness reasons**
Dosage Form/Route: TABLET;ORAL
Application: N020482 | Product #001
Applicant: BAYER HEALTHCARE PHARMACEUTICALS INC
Approved: Sep 6, 1995 | RLD: Yes | RS: No | Type: DISCN